FAERS Safety Report 16013189 (Version 1)
Quarter: 2019Q1

REPORT INFORMATION
  Report Type: Spontaneous
  Country: US (occurrence: US)
  Receive Date: 20190227
  Receipt Date: 20190227
  Transmission Date: 20190418
  Serious: Yes (Death, Other)
  Sender: FDA-Public Use
  Company Number: None

PATIENT
  Age: 55 Year
  Sex: Male
  Weight: 60.66 kg

DRUGS (13)
  1. RISPERIDONE. [Concomitant]
     Active Substance: RISPERIDONE
  2. RANITIDINE HCL [Concomitant]
     Active Substance: RANITIDINE HYDROCHLORIDE
  3. DANAZOL. [Suspect]
     Active Substance: DANAZOL
     Indication: MYELODYSPLASTIC SYNDROME
     Route: 048
     Dates: start: 20180827
  4. MONTELUKAST SODIUM. [Concomitant]
     Active Substance: MONTELUKAST SODIUM
  5. BUPROPION HCL ER [Concomitant]
     Active Substance: BUPROPION HYDROCHLORIDE
  6. NALTREXONE HCL [Concomitant]
     Active Substance: NALTREXONE HYDROCHLORIDE
  7. ALLOPURINOL. [Concomitant]
     Active Substance: ALLOPURINOL
  8. PANTOPRAZOLE SODIUM. [Concomitant]
     Active Substance: PANTOPRAZOLE SODIUM
  9. DONEPEZIL. [Concomitant]
     Active Substance: DONEPEZIL
  10. ZIPRASIDONE HCL [Concomitant]
     Active Substance: ZIPRASIDONE HYDROCHLORIDE
  11. LEVOTHYROXINE SODIUM. [Concomitant]
     Active Substance: LEVOTHYROXINE SODIUM
  12. ESCITALOPRAM OXALATE. [Concomitant]
     Active Substance: ESCITALOPRAM OXALATE
  13. ASPIRIN ADULT LOW STRENGTH [Concomitant]
     Active Substance: ASPIRIN

REACTIONS (1)
  - Death [None]
